FAERS Safety Report 23039265 (Version 1)
Quarter: 2023Q4

REPORT INFORMATION
  Report Type: Spontaneous
  Country: US (occurrence: US)
  Receive Date: 20231006
  Receipt Date: 20231006
  Transmission Date: 20240110
  Serious: Yes (Other)
  Sender: FDA-Public Use
  Company Number: US-BAYER-2023A133758

PATIENT
  Age: 33 Year
  Sex: Female

DRUGS (2)
  1. MIRENA [Suspect]
     Active Substance: LEVONORGESTREL
     Indication: Contraception
     Dosage: 20?G/DAY
     Route: 015
     Dates: start: 20190904, end: 20230405
  2. LILETTA [Suspect]
     Active Substance: LEVONORGESTREL

REACTIONS (11)
  - Embedded device [Recovered/Resolved]
  - Procedural pain [Recovered/Resolved]
  - Dyspareunia [None]
  - Pelvic pain [None]
  - Genital haemorrhage [None]
  - Blood pressure abnormal [Recovered/Resolved]
  - Apathy [Recovered/Resolved]
  - Mood swings [Recovered/Resolved]
  - Coital bleeding [None]
  - Weight decreased [None]
  - Uterine scar [None]

NARRATIVE: CASE EVENT DATE: 20220101
